FAERS Safety Report 13170786 (Version 2)
Quarter: 2018Q1

REPORT INFORMATION
  Report Type: Spontaneous
  Country: US (occurrence: US)
  Receive Date: 20170131
  Receipt Date: 20180126
  Transmission Date: 20180508
  Serious: Yes (Hospitalization, Other)
  Sender: FDA-Public Use
  Company Number: US-ABBVIE-16K-163-1791394-00

PATIENT

DRUGS (2)
  1. HUMIRA [Suspect]
     Active Substance: ADALIMUMAB
     Route: 058
  2. HUMIRA [Suspect]
     Active Substance: ADALIMUMAB
     Indication: HIDRADENITIS
     Route: 058
     Dates: start: 201510

REACTIONS (10)
  - Post procedural complication [Unknown]
  - Hidradenitis [Recovering/Resolving]
  - Cellulitis [Unknown]
  - Joint range of motion decreased [Unknown]
  - Pain [Recovering/Resolving]
  - Sepsis [Unknown]
  - Loss of personal independence in daily activities [Unknown]
  - Surgery [Unknown]
  - Drug ineffective [Unknown]
  - Inappropriate schedule of drug administration [Unknown]

NARRATIVE: CASE EVENT DATE: 201611
